FAERS Safety Report 17045054 (Version 1)
Quarter: 2019Q4

REPORT INFORMATION
  Report Type: Spontaneous
  Country: US (occurrence: US)
  Receive Date: 20191118
  Receipt Date: 20191118
  Transmission Date: 20200122
  Serious: No
  Sender: FDA-Public Use
  Company Number: US-SA-2019SA315414

PATIENT
  Age: 54 Year
  Sex: Female

DRUGS (1)
  1. ALLEGRA ALLERGY [Suspect]
     Active Substance: FEXOFENADINE HYDROCHLORIDE
     Dosage: 1 DF, QD
     Dates: start: 20191011

REACTIONS (5)
  - Urticaria [Unknown]
  - Urinary tract infection [Unknown]
  - Product dose omission [Unknown]
  - Scratch [Unknown]
  - Hypersensitivity [Unknown]
